FAERS Safety Report 5090434-7 (Version None)
Quarter: 2006Q3

REPORT INFORMATION
  Report Type: 
  Country: None (occurrence: None)
  Receive Date: 20060828
  Receipt Date: 20060503
  Transmission Date: 20061208
  Serious: No
  Sender: FDA-Public Use
  Company Number: US-GLAXOSMITHKLINE-A0604229A

PATIENT
  Age: 61 Year
  Sex: Female

DRUGS (2)
  1. WELLBUTRIN [Suspect]
     Dosage: 150MG PER DAY
     Route: 048
     Dates: start: 20060428, end: 20060502
  2. THYROID TAB [Concomitant]

REACTIONS (3)
  - FEELING JITTERY [None]
  - THINKING ABNORMAL [None]
  - TREMOR [None]
